FAERS Safety Report 16892183 (Version 1)
Quarter: 2019Q4

REPORT INFORMATION
  Report Type: Report from Study
  Country: US (occurrence: US)
  Receive Date: 20191007
  Receipt Date: 20191007
  Transmission Date: 20200122
  Serious: No
  Sender: FDA-Public Use
  Company Number: US-INCYTE CORPORATION-2018IN005991

PATIENT

DRUGS (59)
  1. JAKAFI [Suspect]
     Active Substance: RUXOLITINIB
     Dosage: 7.5 MILLIGRAM EVERY 3RD MORNING
     Route: 065
     Dates: start: 20160629, end: 20180411
  2. ASPIRIN                            /00002701/ [Concomitant]
     Active Substance: ASPIRIN
     Dosage: 325 MILLIGRAM, QD
     Route: 065
     Dates: start: 20170913, end: 20180228
  3. CEPHALEXIN                         /00145501/ [Concomitant]
     Active Substance: CEPHALEXIN
     Indication: URINARY TRACT INFECTION
     Dosage: 250 MILLIGRAM PRN 1 HR AFTER INTERCOURSE
     Route: 065
     Dates: start: 20180726
  4. ESTRADIOL. [Concomitant]
     Active Substance: ESTRADIOL
     Indication: URINARY TRACT INFECTION
     Dosage: 1 G, EVERY 3 DAYS
     Route: 065
     Dates: start: 20151014, end: 20170524
  5. LEVALBUTEROL                       /01419301/ [Concomitant]
     Active Substance: LEVALBUTEROL
     Indication: INTERSTITIAL LUNG DISEASE
     Dosage: 45 MICROGRAM 2 PUFF Q4HRS 10 DAYS PRN
     Route: 065
     Dates: start: 20170315, end: 20180806
  6. JAKAFI [Suspect]
     Active Substance: RUXOLITINIB
     Indication: POLYCYTHAEMIA VERA
     Dosage: 10 MG QAM AND 5 MG QPM
     Route: 065
     Dates: start: 20151216, end: 20160112
  7. JAKAFI [Suspect]
     Active Substance: RUXOLITINIB
     Dosage: 5 MG QAM AND 7.5 MG QPM
     Route: 065
     Dates: start: 20160406, end: 20160531
  8. JAKAFI [Suspect]
     Active Substance: RUXOLITINIB
     Dosage: 10 MG QAM AND 7.5 MG QPM
     Route: 065
     Dates: start: 20160601, end: 20160628
  9. JAKAFI [Suspect]
     Active Substance: RUXOLITINIB
     Dosage: 5 MILLIGRAM, QAM
     Route: 065
     Dates: start: 20160406, end: 20160531
  10. JAKAFI [Suspect]
     Active Substance: RUXOLITINIB
     Dosage: 5 MILLIGRAM BID ALTERNATING, 7.5 MILLIGRAM BID ALTERNATING
     Route: 065
     Dates: start: 20190606
  11. AMITRIPTYLINE HCL [Concomitant]
     Active Substance: AMITRIPTYLINE
     Indication: COUGH
     Dosage: 10 MG, QD
     Route: 065
     Dates: start: 20151214, end: 20160323
  12. ASPIRIN                            /00002701/ [Concomitant]
     Active Substance: ASPIRIN
     Indication: POLYCYTHAEMIA VERA
     Dosage: 81 MG, QD
     Route: 065
     Dates: start: 2016, end: 20170913
  13. CHLORPHENIRAMINE MALEATE. [Concomitant]
     Active Substance: CHLORPHENIRAMINE MALEATE
     Indication: URINARY TRACT INFECTION
     Dosage: 4 MG, QD
     Route: 065
     Dates: start: 20140924, end: 20160922
  14. ESTRADIOL. [Concomitant]
     Active Substance: ESTRADIOL
     Dosage: 0.5 GRAM 2-3 TIMES/PER WEEK
     Route: 065
     Dates: start: 20180809
  15. LEVOFLOXACIN. [Concomitant]
     Active Substance: LEVOFLOXACIN
     Indication: URINARY TRACT INFECTION
     Dosage: 500 MG, QD
     Route: 065
     Dates: start: 20160226, end: 20160309
  16. MULTIPLE VITAMINS [Concomitant]
     Active Substance: VITAMINS
     Indication: SUPPLEMENTATION THERAPY
     Dosage: QD
     Route: 065
     Dates: start: 20150421, end: 20170228
  17. TERCONAZOLE. [Concomitant]
     Active Substance: TERCONAZOLE
     Indication: VULVOVAGINITIS
     Dosage: 80 MILLIGRAM NIGHTLY 3 DAYS
     Route: 065
     Dates: start: 20180301, end: 20180304
  18. ALBUTEROL                          /00139501/ [Concomitant]
     Active Substance: ALBUTEROL
     Indication: COUGH
  19. JAKAFI [Suspect]
     Active Substance: RUXOLITINIB
     Dosage: 5 MILLIGRAM, QPM
     Route: 065
     Dates: start: 20160406, end: 20160531
  20. BIOTIN [Concomitant]
     Active Substance: BIOTIN
     Indication: MEDICAL DIET
     Dosage: 5 MG, QD
     Route: 065
     Dates: start: 20150421, end: 20160601
  21. CYCLOBENZAPRINE HCL [Concomitant]
     Active Substance: CYCLOBENZAPRINE HYDROCHLORIDE
     Indication: BACK PAIN
     Dosage: 0.5 MILLIGRAM TID PRN
     Route: 065
     Dates: start: 20160912, end: 20170315
  22. JAKAFI [Suspect]
     Active Substance: RUXOLITINIB
     Dosage: 10 MILLIGRAM 2 MORNINGS OUT OF 3
     Route: 065
     Dates: start: 20160629, end: 20180411
  23. CLONAZEPAM. [Concomitant]
     Active Substance: CLONAZEPAM
     Indication: ANXIETY
     Dosage: 0.5 MG, BID PRN
     Route: 065
     Dates: start: 20150208
  24. ESTRADIOL. [Concomitant]
     Active Substance: ESTRADIOL
     Dosage: 10 MICROGRAM, 2 TIMES PER WEEK
     Route: 065
     Dates: start: 20170823, end: 20180726
  25. METHENAMINE HIPPURATE. [Concomitant]
     Active Substance: METHENAMINE HIPPURATE
     Indication: URINARY TRACT INFECTION
     Dosage: 1 G, Q12H
     Route: 065
     Dates: start: 20150303, end: 20180228
  26. METAMUCIL                          /00091301/ [Concomitant]
     Active Substance: PSYLLIUM HUSK
     Indication: PRODUCT USED FOR UNKNOWN INDICATION
     Dosage: UNK
     Route: 065
     Dates: start: 20160629
  27. SULFAMETHOXAZOLE AND TRIMETHOPRIM [Concomitant]
     Active Substance: SULFAMETHOXAZOLE\TRIMETHOPRIM
     Indication: PRODUCT USED FOR UNKNOWN INDICATION
     Dosage: 80 MG, QD, PRN
     Route: 065
     Dates: start: 20151221, end: 20160113
  28. TRAMADOL HCL [Concomitant]
     Active Substance: TRAMADOL HYDROCHLORIDE
     Indication: ARTHRALGIA
     Dosage: 50 MILLIGRAM Q6HRS PRN
     Route: 065
     Dates: start: 20170913, end: 20180228
  29. HIBICLENS [Concomitant]
     Active Substance: CHLORHEXIDINE GLUCONATE
     Indication: URINARY TRACT INFECTION
     Dosage: 4 PERCENT
     Route: 065
     Dates: start: 20190315
  30. MONTELUKAST SODIUM. [Concomitant]
     Active Substance: MONTELUKAST SODIUM
     Indication: HYPERSENSITIVITY
     Dosage: 10 MILLIGRAM, QD
     Route: 065
     Dates: start: 20190327
  31. FERROUS SULFATE. [Concomitant]
     Active Substance: FERROUS SULFATE
     Dosage: 324 MILLIGRAM, QD
     Route: 065
     Dates: start: 20170914, end: 20180411
  32. DIAZEPAM. [Concomitant]
     Active Substance: DIAZEPAM
     Indication: ANXIETY
     Dosage: 5 MILLIGRAM, PRN
     Route: 065
     Dates: start: 20180530
  33. ALBUTEROL                          /00139501/ [Concomitant]
     Active Substance: ALBUTEROL
     Indication: WHEEZING
     Dosage: 90 BASE MCG 2 PUFF Q6HRS PRN
     Route: 065
     Dates: start: 20180726, end: 20190605
  34. JAKAFI [Suspect]
     Active Substance: RUXOLITINIB
     Dosage: 10 MG QAM AND 15 MG QPM
     Route: 065
     Dates: start: 20160113, end: 20160405
  35. JAKAFI [Suspect]
     Active Substance: RUXOLITINIB
     Dosage: 7.5 MILLIGRAM NIGHTLY
     Route: 065
     Dates: start: 20160629, end: 20180411
  36. AMITRIPTYLINE HCL [Concomitant]
     Active Substance: AMITRIPTYLINE
     Dosage: 10 MG, QD
     Route: 065
     Dates: start: 20160912, end: 20170125
  37. CEPHALEXIN                         /00145501/ [Concomitant]
     Active Substance: CEPHALEXIN
     Indication: URINARY TRACT INFECTION
     Dosage: 500 MG, PRN
     Route: 065
     Dates: start: 20160817, end: 20160922
  38. PANTOPRAZOLE SODIUM. [Concomitant]
     Active Substance: PANTOPRAZOLE SODIUM
     Indication: COUGH
     Dosage: 20 MILLIGRAM, QD
     Route: 065
     Dates: start: 20110909, end: 20160922
  39. PANTOPRAZOLE SODIUM. [Concomitant]
     Active Substance: PANTOPRAZOLE SODIUM
     Dosage: 40 MILLIGRAM, BID
     Route: 065
     Dates: start: 20160923
  40. IMITREX [Concomitant]
     Active Substance: SUMATRIPTAN SUCCINATE
     Indication: MIGRAINE
     Dosage: 100 MG, PRN
     Route: 065
     Dates: start: 20150625
  41. TRIAMCINOLONE ACETONIDE. [Concomitant]
     Active Substance: TRIAMCINOLONE ACETONIDE
     Indication: PRODUCT USED FOR UNKNOWN INDICATION
     Dosage: NK
     Route: 065
     Dates: start: 20150625, end: 20180228
  42. HYDROCODONE/HOMATROPINE [Concomitant]
     Active Substance: HOMATROPINE METHYLBROMIDE\HYDROCODONE BITARTRATE
     Indication: COUGH
     Dosage: 5-1.5 MG/5ML Q6HRSPRN
     Route: 065
     Dates: start: 20190327
  43. FLUTICASONE FUROATE [Concomitant]
     Active Substance: FLUTICASONE FUROATE
     Indication: LUNG DISORDER
     Dosage: UNK
     Route: 065
     Dates: start: 20180411
  44. D-MANNOSE [Concomitant]
     Indication: URINARY TRACT INFECTION
     Dosage: QD
     Route: 065
     Dates: start: 20170315, end: 20170713
  45. CEFUROXIME. [Concomitant]
     Active Substance: CEFUROXIME
     Indication: URINARY TRACT INFECTION
     Dosage: 500 MILLIGRAM BID 10 DAYS
     Route: 065
     Dates: start: 20170713, end: 20170723
  46. JAKAFI [Suspect]
     Active Substance: RUXOLITINIB
     Dosage: 7.5 MILLIGRAM NIGHTLY
     Route: 065
     Dates: start: 20160601, end: 20160628
  47. BISACODYL. [Concomitant]
     Active Substance: BISACODYL
     Indication: CONSTIPATION
     Dosage: 5 MG, BID
     Route: 065
     Dates: start: 20160309, end: 20160601
  48. CEPHALEXIN                         /00145501/ [Concomitant]
     Active Substance: CEPHALEXIN
     Dosage: 500 MILLIGRAM, QD
     Route: 065
     Dates: start: 20180901
  49. ESTRADIOL. [Concomitant]
     Active Substance: ESTRADIOL
     Dosage: 0.5 GRAM, QD
     Route: 065
     Dates: start: 20180726, end: 20180809
  50. GLEEVEC [Concomitant]
     Active Substance: IMATINIB MESYLATE
     Indication: POLYCYTHAEMIA VERA
     Dosage: 100 MG, QID
     Route: 065
     Dates: start: 20151216, end: 20160112
  51. HYDROCODONE BITARTRATE AND ACETAMINOPHEN [Concomitant]
     Active Substance: ACETAMINOPHEN\HYDROCODONE BITARTRATE
     Indication: BACK PAIN
     Dosage: 5-325 MG, 1 CAPSULE Q6H, PRN
     Route: 048
     Dates: start: 20160912, end: 20180228
  52. CYCLOBENZAPRINE HCL [Concomitant]
     Active Substance: CYCLOBENZAPRINE HYDROCHLORIDE
     Indication: MUSCLE SPASMS
  53. JAKAFI [Suspect]
     Active Substance: RUXOLITINIB
     Dosage: 10 MG TWO MORNINGS OUT OF THREE/7.5 MG EVERY THIRD MORNING/7.5 MG QPM
     Route: 065
     Dates: start: 20160629
  54. ESTRADIOL. [Concomitant]
     Active Substance: ESTRADIOL
     Dosage: 10 MICROGRAM Q3D
     Route: 065
     Dates: start: 20170524, end: 20170823
  55. GLEEVEC [Concomitant]
     Active Substance: IMATINIB MESYLATE
     Dosage: 100 MG, TID
     Route: 065
     Dates: start: 20160113, end: 20160209
  56. NAPROXEN. [Concomitant]
     Active Substance: NAPROXEN
     Indication: PAIN
     Dosage: 500 MG, BID, PRN
     Route: 065
     Dates: start: 20150426, end: 20160922
  57. PSYLLIUM                           /01328801/ [Concomitant]
     Active Substance: PLANTAGO SEED
     Indication: CONSTIPATION
     Dosage: 1 TABLET QD
     Route: 065
     Dates: start: 20160629, end: 20170125
  58. LACTOBACILLUS [Concomitant]
     Active Substance: LACTOBACILLUS ACIDOPHILUS
     Indication: URINARY TRACT INFECTION
     Dosage: 1 TABLET BID
     Route: 065
     Dates: start: 20170315
  59. FERROUS SULFATE. [Concomitant]
     Active Substance: FERROUS SULFATE
     Indication: ANAEMIA
     Dosage: 324 MILLIGRAM, BID
     Route: 065
     Dates: start: 20170831, end: 20170913

REACTIONS (20)
  - Menopausal symptoms [Not Recovered/Not Resolved]
  - Osteoarthritis [Recovered/Resolved]
  - Constipation [Not Recovered/Not Resolved]
  - Back pain [Recovered/Resolved]
  - Pyrexia [Recovered/Resolved]
  - Rectal prolapse [Not Recovered/Not Resolved]
  - Fungal infection [Not Recovered/Not Resolved]
  - Pain in extremity [Not Recovered/Not Resolved]
  - Anaemia [Recovered/Resolved]
  - Cystocele [Not Recovered/Not Resolved]
  - Lumbar spinal stenosis [Recovered/Resolved]
  - Pelvic prolapse [Not Recovered/Not Resolved]
  - Urinary incontinence [Not Recovered/Not Resolved]
  - Atrophic vulvovaginitis [Not Recovered/Not Resolved]
  - Pyrexia [Recovered/Resolved]
  - Pyrexia [Recovered/Resolved]
  - Pyrexia [Recovered/Resolved]
  - Obstruction [Not Recovered/Not Resolved]
  - Rectocele [Not Recovered/Not Resolved]
  - Pelvic prolapse [Not Recovered/Not Resolved]

NARRATIVE: CASE EVENT DATE: 20160912
